FAERS Safety Report 7350370-X (Version None)
Quarter: 2011Q1

REPORT INFORMATION
  Report Type: 
  Country: None (occurrence: None)
  Receive Date: 20110314
  Receipt Date: 20110302
  Transmission Date: 20110831
  Serious: Yes (Hospitalization)
  Sender: FDA-Public Use
  Company Number: US-JNJFOC-20110301743

PATIENT
  Sex: Male
  Weight: 82.56 kg

DRUGS (2)
  1. REMICADE [Suspect]
     Indication: COLITIS ULCERATIVE
     Route: 042
  2. PREDNISONE TAB [Concomitant]
     Indication: INFLAMMATION
     Route: 048

REACTIONS (4)
  - FATIGUE [None]
  - ARTHRALGIA [None]
  - ATELECTASIS [None]
  - PLEURAL EFFUSION [None]
